FAERS Safety Report 8856675 (Version 1)
Quarter: 2012Q4

REPORT INFORMATION
  Report Type: Spontaneous
  Country: US (occurrence: None)
  Receive Date: 20121024
  Receipt Date: 20121024
  Transmission Date: 20130627
  Serious: Yes (Other)
  Sender: FDA-Public Use
  Company Number: None

PATIENT
  Age: 59 Year
  Sex: Female
  Weight: 81.65 kg

DRUGS (3)
  1. METHYLPREDNISOLONE [Suspect]
     Indication: LOCAL SWELLING
     Dates: start: 20040830, end: 20120206
  2. METHYLPREDNISOLONE [Suspect]
     Indication: SWELLING OF FINGERS
     Dates: start: 20040830, end: 20120206
  3. METHYLPREDNISOLONE [Suspect]
     Indication: OEDEMA PERIPHERAL
     Dates: start: 20040830, end: 20120206

REACTIONS (13)
  - Chest pain [None]
  - Pain [None]
  - Dysphagia [None]
  - Dyspepsia [None]
  - Abdominal discomfort [None]
  - Nausea [None]
  - Throat irritation [None]
  - Reaction to drug excipients [None]
  - Foreign body [None]
  - Hiatus hernia [None]
  - Blood glucose increased [None]
  - Blood sodium increased [None]
  - Hormone level abnormal [None]
